FAERS Safety Report 9260596 (Version 1)
Quarter: 2013Q2

REPORT INFORMATION
  Report Type: Spontaneous
  Country: NL (occurrence: NL)
  Receive Date: 20130429
  Receipt Date: 20130429
  Transmission Date: 20140414
  Serious: Yes (Hospitalization, Other)
  Sender: FDA-Public Use
  Company Number: NL-TEVA-400830ISR

PATIENT
  Sex: Female

DRUGS (6)
  1. PERGOLIDE TABLET 0,25 MG PCH [Suspect]
     Indication: RESTLESS LEGS SYNDROME
     Dosage: 1.5 MILLIGRAM DAILY; THREE TIMES DAILY 2 TABLETS OF 0.25 MG
     Route: 048
     Dates: start: 20050113, end: 2010
  2. TEMAZEPAM CAPS 20 MG [Concomitant]
     Dosage: 20 MILLIGRAM DAILY; ONCE A DAY 1 CAPSULE BEFORE THE NIGHT
     Route: 048
  3. EMCORETIC TABLET 10/25 MG [Concomitant]
     Indication: HYPERTENSION
     Dosage: 10 MILLIGRAM DAILY; ONCE A DAY 1 TABLET
     Route: 048
  4. EMCORETIC TABLET 10/25 MG [Concomitant]
     Dosage: 25 MILLIGRAM DAILY; ONCE A DAY 1 TABLET
     Route: 048
  5. ZALDIAR [Concomitant]
     Indication: ARTHRALGIA
     Dosage: 75 MILLIGRAM DAILY; IF NEEDED TILL TWICE DAILY 1 TABLET
     Route: 048
     Dates: start: 2010
  6. ZALDIAR [Concomitant]
     Dosage: 650 MILLIGRAM DAILY; IF NEEDED TILL TWICE DAILY 1 TABLET
     Route: 048
     Dates: start: 2010

REACTIONS (1)
  - Pathological gambling [Recovering/Resolving]
